FAERS Safety Report 4716834-X (Version None)
Quarter: 2005Q3

REPORT INFORMATION
  Report Type: 
  Country: None (occurrence: None)
  Receive Date: 20050714
  Receipt Date: 20050701
  Transmission Date: 20060218
  Serious: Yes (Hospitalization)
  Sender: FDA-Public Use
  Company Number: 2005096267

PATIENT
  Age: 77 Year
  Sex: Male

DRUGS (8)
  1. ESTRACYT (ESTRAMUSTINE PHOSPHATE SODIUM) [Suspect]
     Indication: PROSTATE CANCER
     Dosage: SEE IMAGE
     Route: 048
     Dates: start: 20050405, end: 20050419
  2. ESTRACYT (ESTRAMUSTINE PHOSPHATE SODIUM) [Suspect]
     Indication: PROSTATE CANCER
     Dosage: SEE IMAGE
     Route: 048
     Dates: start: 20050420, end: 20050422
  3. REBAMIPIDE (REBAMIPIDE) [Suspect]
     Indication: GASTRIC ULCER
     Dosage: 300 MG, ORAL
     Route: 048
     Dates: start: 20050405, end: 20050422
  4. QUINAPRIL HCL [Suspect]
     Indication: HYPERTENSION
     Dosage: 5 MG, ORAL
     Route: 048
  5. ALLOPURINOL [Suspect]
     Indication: HYPERURICAEMIA
     Dosage: 100 MG, ORAL
     Route: 048
  6. NITRAZEPAM [Suspect]
     Indication: ILL-DEFINED DISORDER
     Dosage: 5 MG, ORAL
     Route: 048
  7. SOFALCONE (SOFALCONE) [Suspect]
     Indication: ILL-DEFINED DISORDER
     Dosage: 300 MG, ORAL
     Route: 048
  8. TOCOPHEROL NICOTINATE (TOCOPHEROL) [Suspect]
     Indication: ILL-DEFINED DISORDER
     Dosage: 300 MG, ORAL
     Route: 048

REACTIONS (2)
  - PLEURAL EFFUSION [None]
  - PULMONARY OEDEMA [None]
